FAERS Safety Report 24981050 (Version 1)
Quarter: 2025Q1

REPORT INFORMATION
  Report Type: Spontaneous
  Country: US (occurrence: US)
  Receive Date: 20250218
  Receipt Date: 20250218
  Transmission Date: 20250409
  Serious: Yes (Other)
  Sender: MERZ
  Company Number: US-ACORDA-ACO_176472_2024

PATIENT
  Age: 80 Year
  Sex: Male

DRUGS (9)
  1. INBRIJA [Suspect]
     Active Substance: LEVODOPA
     Indication: Parkinson^s disease
     Dosage: 2 DOSAGE FORM, BID
     Route: 048
     Dates: start: 20240208
  2. INBRIJA [Suspect]
     Active Substance: LEVODOPA
     Indication: On and off phenomenon
     Dates: start: 20240208
  3. INBRIJA [Suspect]
     Active Substance: LEVODOPA
     Dates: start: 20240208
  4. INBRIJA [Suspect]
     Active Substance: LEVODOPA
     Dates: start: 20240208
  5. INBRIJA [Suspect]
     Active Substance: LEVODOPA
     Dates: start: 20240208
  6. SINEMET [Concomitant]
     Active Substance: CARBIDOPA\LEVODOPA
     Indication: Product used for unknown indication
     Dosage: 2.5 DOSAGE FORM (25/100 MILLIGRAM), QID
     Route: 048
  7. PARCOPA [Concomitant]
     Active Substance: CARBIDOPA\LEVODOPA
     Indication: Product used for unknown indication
     Dosage: 1 DOSAGE FORM (25/100), BID
     Route: 048
  8. TELMISARTAN [Concomitant]
     Active Substance: TELMISARTAN
     Indication: Product used for unknown indication
     Route: 065
  9. FAMOTIDINE [Concomitant]
     Active Substance: FAMOTIDINE
     Indication: Product used for unknown indication
     Route: 065

REACTIONS (21)
  - Glaucoma [Not Recovered/Not Resolved]
  - Rash pruritic [Unknown]
  - Unevaluable event [Not Recovered/Not Resolved]
  - Dysarthria [Unknown]
  - Condition aggravated [Unknown]
  - Condition aggravated [Unknown]
  - Coordination abnormal [Unknown]
  - Condition aggravated [Unknown]
  - Incorrect route of product administration [Unknown]
  - Incorrect dose administered by device [Not Recovered/Not Resolved]
  - Therapy interrupted [Not Recovered/Not Resolved]
  - Device issue [Not Recovered/Not Resolved]
  - Wrong technique in product usage process [Not Recovered/Not Resolved]
  - Hyperhidrosis [Unknown]
  - Gait disturbance [Unknown]
  - Asthenia [Unknown]
  - Drug ineffective [Not Recovered/Not Resolved]
  - Cough [Not Recovered/Not Resolved]
  - Confusional state [Unknown]
  - Headache [Unknown]
  - Dyskinesia [Unknown]

NARRATIVE: CASE EVENT DATE: 20240208
